FAERS Safety Report 21949095 (Version 4)
Quarter: 2024Q3

REPORT INFORMATION
  Report Type: Spontaneous
  Country: GB (occurrence: GB)
  Receive Date: 20230203
  Receipt Date: 20240815
  Transmission Date: 20241016
  Serious: Yes (Other)
  Sender: CELLTRION
  Company Number: GB-CELLTRION INC.-2023GB002262

PATIENT

DRUGS (3)
  1. INFLIXIMAB [Suspect]
     Active Substance: INFLIXIMAB
     Indication: Colitis ulcerative
     Dosage: 120MG PRE FILLED PEN
     Route: 058
     Dates: start: 202212
  2. INFLIXIMAB [Suspect]
     Active Substance: INFLIXIMAB
     Indication: Crohn^s disease
     Dosage: 120MG PRE FILLED PEN
     Route: 058
     Dates: start: 202212
  3. INFLIXIMAB [Suspect]
     Active Substance: INFLIXIMAB
     Dosage: 120MG PRE FILLED PEN
     Route: 058
     Dates: start: 202101

REACTIONS (7)
  - Haematochezia [Unknown]
  - Condition aggravated [Unknown]
  - Feeling abnormal [Unknown]
  - Pain [Unknown]
  - Constipation [Unknown]
  - Therapy interrupted [Unknown]
  - Drug effect less than expected [Unknown]
